FAERS Safety Report 5168829-2 (Version None)
Quarter: 2006Q4

REPORT INFORMATION
  Report Type: 
  Country: None (occurrence: None)
  Receive Date: 20061205
  Receipt Date: 20061205
  Transmission Date: 20070319
  Serious: No
  Sender: FDA-Public Use
  Company Number: None

PATIENT
  Age: 45 Year
  Weight: 53.978 kg

DRUGS (2)
  1. LEVAQUIN [Suspect]
     Indication: SINUSITIS
     Dosage: 750 MG DAILY PO
     Route: 048
     Dates: start: 20061118, end: 20061118
  2. LEVAQUIN [Suspect]
     Indication: SINUSITIS
     Dosage: 750 MG DAILY PO
     Route: 048
     Dates: start: 20061126, end: 20061126

REACTIONS (6)
  - ASTHENIA [None]
  - JOINT SWELLING [None]
  - NEURALGIA [None]
  - NEUROPATHY PERIPHERAL [None]
  - OEDEMA PERIPHERAL [None]
  - TENDON PAIN [None]
